FAERS Safety Report 21531696 (Version 1)
Quarter: 2022Q4

REPORT INFORMATION
  Report Type: Spontaneous
  Country: AU (occurrence: AU)
  Receive Date: 20221031
  Receipt Date: 20221031
  Transmission Date: 20230113
  Serious: Yes (Hospitalization)
  Sender: FDA-Public Use
  Company Number: AU-BEIGENE AUS PTY LTD-BGN-2022-010297

PATIENT
  Age: 84 Year
  Sex: Male
  Weight: 73 kg

DRUGS (12)
  1. AZACITIDINE [Suspect]
     Active Substance: AZACITIDINE
     Indication: Myelodysplastic syndrome
     Dosage: 139.5 MILLIGRAM, QD
     Route: 042
     Dates: start: 20220502
  2. AZACITIDINE [Suspect]
     Active Substance: AZACITIDINE
     Indication: Myeloproliferative neoplasm
     Dosage: 139.5 MILLIGRAM, QD
     Route: 042
     Dates: start: 20220826
  3. BGB-11417 [Suspect]
     Active Substance: BGB-11417
     Indication: Myelodysplastic syndrome
     Dosage: 5 MILLIGRAM, QD
     Route: 048
     Dates: start: 20220502
  4. BGB-11417 [Suspect]
     Active Substance: BGB-11417
     Indication: Myeloproliferative neoplasm
     Dosage: 40 MILLIGRAM, QD
     Route: 048
     Dates: start: 20220822
  5. ALLOPURINOL [Concomitant]
     Active Substance: ALLOPURINOL
     Indication: Prophylaxis
     Dosage: UNK
     Route: 048
     Dates: start: 20220429
  6. ESOMEPRAZOLE [Concomitant]
     Active Substance: ESOMEPRAZOLE
     Indication: Gastrooesophageal reflux disease
     Dosage: UNK
     Route: 048
     Dates: start: 20220818
  7. METHOXYFLURANE [Concomitant]
     Active Substance: METHOXYFLURANE
     Indication: Procedural pain
     Dosage: UNK
     Route: 055
     Dates: start: 20220818, end: 20220818
  8. DUTASTERIDE\TAMSULOSIN [Concomitant]
     Active Substance: DUTASTERIDE\TAMSULOSIN
     Indication: Benign prostatic hyperplasia
     Dosage: UNK
     Route: 048
     Dates: start: 2022
  9. SYMBICORT [Concomitant]
     Active Substance: BUDESONIDE\FORMOTEROL FUMARATE DIHYDRATE
     Indication: Asthma
     Dosage: UNK
     Route: 055
  10. ACETAMINOPHEN [Concomitant]
     Active Substance: ACETAMINOPHEN
     Indication: Neck pain
     Route: 048
     Dates: start: 2019
  11. NASALATE [Concomitant]
     Indication: Epistaxis
     Dosage: UNK
     Route: 045
     Dates: start: 2022
  12. KENACOMB OTIC [Concomitant]
     Indication: Epistaxis
     Dosage: UNK
     Route: 045
     Dates: start: 2022

REACTIONS (1)
  - Epistaxis [Recovered/Resolved]

NARRATIVE: CASE EVENT DATE: 20220826
